FAERS Safety Report 4619990-7 (Version None)
Quarter: 2005Q1

REPORT INFORMATION
  Report Type: 
  Country: None (occurrence: None)
  Receive Date: 20050321
  Receipt Date: 20050321
  Transmission Date: 20050727
  Serious: No
  Sender: FDA-Public Use
  Company Number: None

PATIENT
  Sex: Male
  Weight: 72.57 kg

DRUGS (3)
  1. PACLITAXEL [Suspect]
     Dates: start: 20041206
  2. CISPLATIN [Suspect]
  3. RADIOTHERAPY (50.4 GY) [Suspect]

REACTIONS (9)
  - DEHYDRATION [None]
  - DIARRHOEA [None]
  - DRY THROAT [None]
  - HYPOKALAEMIA [None]
  - HYPOMAGNESAEMIA [None]
  - PHARYNGOLARYNGEAL PAIN [None]
  - PRODUCTIVE COUGH [None]
  - PYREXIA [None]
  - VOMITING [None]
